FAERS Safety Report 5598101-8 (Version None)
Quarter: 2008Q1

REPORT INFORMATION
  Report Type: 
  Country: None (occurrence: None)
  Receive Date: 20080122
  Receipt Date: 20080116
  Transmission Date: 20080703
  Serious: Yes (Hospitalization)
  Sender: FDA-Public Use
  Company Number: PHBS2008TR01001

PATIENT
  Age: 13 Month
  Sex: Male
  Weight: 9 kg

DRUGS (4)
  1. RIFAMPICIN [Concomitant]
     Dosage: 15 MG/KG/D
     Route: 048
  2. CYCLOSPORINE [Suspect]
     Indication: BONE MARROW TRANSPLANT
     Route: 065
  3. ISONIAZID [Concomitant]
     Dosage: 10 MG/KG/D
     Route: 048
  4. CIPROFLOXACIN [Concomitant]
     Dosage: 30 MG/KG/D
     Route: 048

REACTIONS (6)
  - ABSCESS [None]
  - BOVINE TUBERCULOSIS [None]
  - DELAYED ENGRAFTMENT [None]
  - HAEMOLYTIC ANAEMIA [None]
  - LYMPHADENITIS [None]
  - SURGERY [None]
